FAERS Safety Report 24454035 (Version 2)
Quarter: 2024Q4

REPORT INFORMATION
  Report Type: Report from Study
  Country: US (occurrence: US)
  Receive Date: 20241017
  Receipt Date: 20241018
  Transmission Date: 20250115
  Serious: No
  Sender: ROCHE
  Company Number: US-ROCHE-3399382

PATIENT
  Age: 74 Year
  Sex: Female

DRUGS (6)
  1. RITUXAN [Suspect]
     Active Substance: RITUXIMAB
     Indication: Mantle cell lymphoma
     Dosage: DOSE 10 ML AND 50 ML
     Route: 042
  2. ONDANSETRON [Concomitant]
     Active Substance: ONDANSETRON
  3. DEXAMETHASONE [Concomitant]
     Active Substance: DEXAMETHASONE
  4. DIPHENHYDRAMINE [Concomitant]
     Active Substance: DIPHENHYDRAMINE
  5. ACETAMINOPHEN [Concomitant]
     Active Substance: ACETAMINOPHEN
  6. BENDAMUSTINE [Concomitant]
     Active Substance: BENDAMUSTINE

REACTIONS (3)
  - Product prescribing error [Unknown]
  - No adverse event [Unknown]
  - Circumstance or information capable of leading to medication error [Unknown]
